FAERS Safety Report 25315630 (Version 4)
Quarter: 2025Q3

REPORT INFORMATION
  Report Type: Report from Study
  Country: CA (occurrence: CA)
  Receive Date: 20250515
  Receipt Date: 20250721
  Transmission Date: 20251021
  Serious: Yes (Other)
  Sender: TAKEDA
  Company Number: CA-TAKEDA-2025TUS045143

PATIENT
  Age: 76 Year
  Sex: Female
  Weight: 49.887 kg

DRUGS (5)
  1. VEDOLIZUMAB [Suspect]
     Active Substance: VEDOLIZUMAB
     Indication: Colitis microscopic
  2. VEDOLIZUMAB [Suspect]
     Active Substance: VEDOLIZUMAB
     Indication: Colitis ulcerative
  3. BUDESONIDE [Concomitant]
     Active Substance: BUDESONIDE
  4. ENTOCORT [Concomitant]
     Active Substance: BUDESONIDE
  5. Cortiment [Concomitant]

REACTIONS (5)
  - Haematochezia [Unknown]
  - Brain neoplasm [Recovering/Resolving]
  - Frequent bowel movements [Unknown]
  - Diarrhoea [Unknown]
  - Off label use [Unknown]

NARRATIVE: CASE EVENT DATE: 20240823
